FAERS Safety Report 6664049-0 (Version None)
Quarter: 2010Q2

REPORT INFORMATION
  Report Type: 
  Country: None (occurrence: None)
  Receive Date: 20100401
  Receipt Date: 20100329
  Transmission Date: 20101027
  Serious: Yes (Other)
  Sender: FDA-Public Use
  Company Number: A0852393A

PATIENT
  Age: 81 Year
  Sex: Male

DRUGS (6)
  1. ADVAIR DISKUS 100/50 [Suspect]
     Indication: CHRONIC OBSTRUCTIVE PULMONARY DISEASE
     Dosage: 1PUFF PER DAY
     Route: 055
     Dates: start: 20020101
  2. SPIRIVA [Suspect]
     Indication: CHRONIC OBSTRUCTIVE PULMONARY DISEASE
     Route: 065
  3. COMBIVENT [Concomitant]
  4. NEBULIZER [Concomitant]
  5. ALBUTEROL [Concomitant]
  6. IPRATROPIUM BROMIDE [Concomitant]

REACTIONS (8)
  - CATARACT [None]
  - DYSPHONIA [None]
  - EYE INJURY [None]
  - GLAUCOMA [None]
  - HEADACHE [None]
  - HYPERTENSION [None]
  - LARYNGITIS [None]
  - THERAPEUTIC RESPONSE DECREASED [None]
